FAERS Safety Report 5418509-0 (Version None)
Quarter: 2007Q3

REPORT INFORMATION
  Report Type: 
  Country: None (occurrence: None)
  Receive Date: 20070817
  Receipt Date: 20070810
  Transmission Date: 20080115
  Serious: Yes (Hospitalization)
  Sender: FDA-Public Use
  Company Number: US-BOEHRINGER INGELHEIM PHARMACEUTICALS, INC.-2007-BP-19011BP

PATIENT
  Age: 84 Year
  Sex: Male

DRUGS (2)
  1. FLOMAX [Suspect]
     Indication: BENIGN PROSTATIC HYPERPLASIA
     Route: 048
  2. NORVASC [Concomitant]
     Indication: HYPERTENSION
     Route: 048

REACTIONS (10)
  - ADRENAL ADENOMA [None]
  - BLOOD CREATININE INCREASED [None]
  - BLOOD UREA INCREASED [None]
  - ELECTROCARDIOGRAM CHANGE [None]
  - HAEMATURIA [None]
  - RENAL FAILURE ACUTE [None]
  - SENSATION OF PRESSURE [None]
  - SINUS TACHYCARDIA [None]
  - TROPONIN INCREASED [None]
  - URINARY TRACT OBSTRUCTION [None]
